FAERS Safety Report 23146759 (Version 3)
Quarter: 2024Q1

REPORT INFORMATION
  Report Type: Report from Study
  Country: JP (occurrence: JP)
  Receive Date: 20231105
  Receipt Date: 20240220
  Transmission Date: 20240410
  Serious: Yes (Death, Hospitalization)
  Sender: FDA-Public Use
  Company Number: JP-JNJFOC-A-CH2016-144945

PATIENT
  Age: 74 Year
  Sex: Female

DRUGS (16)
  1. TRACLEER [Suspect]
     Active Substance: BOSENTAN
     Indication: Scleroderma associated digital ulcer
     Dosage: 125 MG, BID
     Route: 048
     Dates: start: 20151120, end: 20160126
  2. TRACLEER [Suspect]
     Active Substance: BOSENTAN
     Indication: Skin ulcer
     Dosage: 62.5 MG, BID
     Route: 048
     Dates: start: 20151022, end: 20151119
  3. PREDNISOLONE [Concomitant]
     Active Substance: PREDNISOLONE
     Indication: Autoimmune hepatitis
     Route: 048
     Dates: start: 20151022, end: 20151119
  4. SODIUM FERROUS CITRATE [Concomitant]
     Active Substance: SODIUM FERROUS CITRATE
     Indication: Iron deficiency anaemia
     Dates: start: 20151022, end: 20151119
  5. SODIUM FERROUS CITRATE [Concomitant]
     Active Substance: SODIUM FERROUS CITRATE
     Dates: start: 20151120, end: 20160127
  6. FUROSEMIDE [Concomitant]
     Active Substance: FUROSEMIDE
     Indication: Cardiac failure
     Dates: start: 20151022, end: 20160119
  7. LEVOTHYROXINE [Concomitant]
     Active Substance: LEVOTHYROXINE\LEVOTHYROXINE SODIUM
     Indication: Hypothyroidism
     Dates: start: 20151022, end: 20160207
  8. GENTAMICIN SULFATE [Concomitant]
     Active Substance: GENTAMICIN SULFATE
     Indication: Skin infection
     Route: 003
     Dates: start: 20151022, end: 20151118
  9. LANSOPRAZOLE [Concomitant]
     Active Substance: LANSOPRAZOLE
     Indication: Gastrooesophageal reflux disease
     Dates: start: 20151022, end: 20151118
  10. LANSOPRAZOLE [Concomitant]
     Active Substance: LANSOPRAZOLE
     Dates: start: 20151120, end: 20160203
  11. ACETAMINOPHEN [Concomitant]
     Active Substance: ACETAMINOPHEN
     Indication: Pain
     Route: 048
     Dates: start: 20151022, end: 20151118
  12. ALYPROST [Concomitant]
     Indication: Product used for unknown indication
     Dates: start: 20151119, end: 20151207
  13. ZOSYN [Concomitant]
     Active Substance: PIPERACILLIN SODIUM\TAZOBACTAM SODIUM
     Indication: Skin ulcer
     Route: 042
     Dates: start: 20151125, end: 20151207
  14. ZOSYN [Concomitant]
     Active Substance: PIPERACILLIN SODIUM\TAZOBACTAM SODIUM
     Route: 042
     Dates: start: 20160118, end: 20160128
  15. VANCOMYCIN [Concomitant]
     Active Substance: VANCOMYCIN
     Indication: Skin ulcer
     Route: 042
     Dates: start: 20151124, end: 20151130
  16. ALENDRONATE SODIUM [Concomitant]
     Active Substance: ALENDRONATE SODIUM
     Indication: Osteoporosis
     Dates: start: 20151121, end: 20160104

REACTIONS (5)
  - Death [Fatal]
  - Necrosis [Fatal]
  - Skin ulcer [Recovering/Resolving]
  - Gangrene [Unknown]
  - Off label use [Unknown]

NARRATIVE: CASE EVENT DATE: 20151022
